FAERS Safety Report 25830060 (Version 6)
Quarter: 2025Q4

REPORT INFORMATION
  Report Type: Spontaneous
  Country: JP (occurrence: JP)
  Receive Date: 20250922
  Receipt Date: 20251030
  Transmission Date: 20260117
  Serious: Yes (Death, Other)
  Sender: LEO PHARM
  Company Number: JP-LEO Pharma-378389

PATIENT
  Age: 90 Year
  Sex: Male
  Weight: 34 kg

DRUGS (2)
  1. CALCIPOTRIENE [Suspect]
     Active Substance: CALCIPOTRIENE
     Indication: Psoriasis
     Dosage: APPLY ONCE OR TWICE DAILY TO THE LOWER LIMBS, 50?G/G
     Dates: start: 20250210, end: 20250311
  2. CALCIPOTRIENE [Suspect]
     Active Substance: CALCIPOTRIENE
     Indication: Psoriasis
     Dosage: APPLY ONCE OR TWICE DAILY TO THE LOWER LIMBS, 50?G/G
     Dates: start: 20250210, end: 20250311

REACTIONS (2)
  - Cardiac failure chronic [Unknown]
  - Acute kidney injury [Fatal]

NARRATIVE: CASE EVENT DATE: 20250304
